FAERS Safety Report 9511751 (Version 1)
Quarter: 2013Q3

REPORT INFORMATION
  Report Type: Spontaneous
  Country: US (occurrence: None)
  Receive Date: 20130909
  Receipt Date: 20130909
  Transmission Date: 20140515
  Serious: Yes (Life-Threatening, Hospitalization)
  Sender: FDA-Public Use
  Company Number: None

PATIENT
  Age: 59 Year
  Sex: Female
  Weight: 54.43 kg

DRUGS (1)
  1. TEGRETOL [Suspect]
     Indication: DEPRESSION
     Dosage: TAKEN BY MOUTH
     Route: 048
     Dates: start: 20111217, end: 20111219

REACTIONS (6)
  - Drug hypersensitivity [None]
  - Erythema multiforme [None]
  - Scratch [None]
  - Pain in extremity [None]
  - Pain [None]
  - Skin exfoliation [None]
